FAERS Safety Report 13880596 (Version 3)
Quarter: 2017Q3

REPORT INFORMATION
  Report Type: Spontaneous
  Country: US (occurrence: US)
  Receive Date: 20170818
  Receipt Date: 20170919
  Transmission Date: 20171127
  Serious: Yes (Other)
  Sender: FDA-Public Use
  Company Number: US-PFIZER INC-2017355141

PATIENT
  Age: 51 Year
  Sex: Female
  Weight: 71 kg

DRUGS (5)
  1. DUAVEE [Suspect]
     Active Substance: BAZEDOXIFENE ACETATE\ESTROGENS, CONJUGATED
     Indication: HOT FLUSH
     Dosage: 20 MG, 1X/DAY
     Route: 048
     Dates: start: 201707, end: 20170810
  2. DUAVEE [Suspect]
     Active Substance: BAZEDOXIFENE ACETATE\ESTROGENS, CONJUGATED
     Indication: MENOPAUSE
  3. PROBIOTIC [Concomitant]
     Active Substance: PROBIOTICS NOS
     Indication: IMMUNE SYSTEM DISORDER
     Dosage: UNK UNK, 1X/DAY
     Dates: start: 2017
  4. PROBIOTIC [Concomitant]
     Active Substance: PROBIOTICS NOS
     Indication: HOT FLUSH
  5. EVENING PRIMROSE OIL [Concomitant]
     Active Substance: EVENING PRIMROSE OIL
     Indication: HOT FLUSH
     Dosage: UNK
     Dates: start: 2017, end: 20170810

REACTIONS (7)
  - Blister [Recovering/Resolving]
  - Photosensitivity reaction [Not Recovered/Not Resolved]
  - Hypersensitivity [Recovering/Resolving]
  - Thermal burn [Unknown]
  - Skin burning sensation [Not Recovered/Not Resolved]
  - Rash erythematous [Unknown]
  - Skin exfoliation [Unknown]

NARRATIVE: CASE EVENT DATE: 20170729
